FAERS Safety Report 24355551 (Version 1)
Quarter: 2024Q3

REPORT INFORMATION
  Report Type: Spontaneous
  Country: US (occurrence: US)
  Receive Date: 20240924
  Receipt Date: 20240924
  Transmission Date: 20241016
  Serious: Yes (Hospitalization, Other)
  Sender: SPECGX
  Company Number: US-SPECGX-T202401898

PATIENT
  Age: 25 Year
  Sex: Male

DRUGS (6)
  1. OXYCODONE [Suspect]
     Active Substance: OXYCODONE
     Indication: Product used for unknown indication
     Dosage: UNK
     Route: 048
  2. ALCOHOL [Suspect]
     Active Substance: ALCOHOL
     Indication: Product used for unknown indication
     Dosage: UNK
     Route: 048
  3. COCAINE [Suspect]
     Active Substance: COCAINE
     Indication: Product used for unknown indication
     Dosage: UNK
     Route: 065
  4. CANNABIS SATIVA SUBSP. INDICA TOP [Suspect]
     Active Substance: CANNABIS SATIVA SUBSP. INDICA TOP
     Indication: Product used for unknown indication
     Dosage: UNK (SMOKING)
     Route: 065
  5. NALOXONE [Suspect]
     Active Substance: NALOXONE
     Indication: Overdose
     Dosage: 0.2 MILLIGRAM
     Route: 065
  6. NALOXONE [Suspect]
     Active Substance: NALOXONE
     Dosage: UNK  (ADDITIONAL DOSES)
     Route: 065

REACTIONS (11)
  - Pneumomediastinum [Unknown]
  - Pneumopericardium [Unknown]
  - Diffuse alveolar damage [Unknown]
  - Bradypnoea [Unknown]
  - Respiratory failure [Unknown]
  - Depressed level of consciousness [Recovering/Resolving]
  - Pulmonary oedema [Recovered/Resolved]
  - Overdose [Unknown]
  - Miosis [Unknown]
  - Somnolence [Unknown]
  - Substance abuse [Unknown]
